FAERS Safety Report 19407471 (Version 1)
Quarter: 2021Q2

REPORT INFORMATION
  Report Type: Spontaneous
  Country: DE (occurrence: DE)
  Receive Date: 20210611
  Receipt Date: 20210611
  Transmission Date: 20210717
  Serious: Yes (Hospitalization)
  Sender: FDA-Public Use
  Company Number: DE-TEVA-2021-DE-1920599

PATIENT
  Age: 86 Year
  Sex: Female

DRUGS (8)
  1. CETRIZIN [Concomitant]
     Dosage: 10 MILLIGRAM DAILY;  0?0?1?0
  2. METOPROLOL. [Concomitant]
     Active Substance: METOPROLOL
     Dosage: 3 DOSAGE FORMS DAILY; 47.5 MG, 1.5?0?1.5?0,
  3. LETROZOL [Concomitant]
     Active Substance: LETROZOLE
     Dosage: 2.5 MILLIGRAM DAILY;  1?0?0?0,
  4. TORASEMID [Suspect]
     Active Substance: TORSEMIDE
     Dosage: 4 DOSAGE FORMS DAILY; 10 MG, 2?2?0?0,
  5. PANTOPRAZOL [Concomitant]
     Active Substance: PANTOPRAZOLE SODIUM
     Dosage: 80 MILLIGRAM DAILY;   1?0?1?0,
  6. ELIQUIS [Suspect]
     Active Substance: APIXABAN
     Dosage: 2.5 MILLIGRAM DAILY;   0?0?1?0,
  7. LEVOTHYROXIN?NATRIUM [Concomitant]
     Active Substance: LEVOTHYROXINE SODIUM
     Dosage: 125 MILLIGRAM DAILY;   1?0?0?0,
  8. METAMIZOL [Concomitant]
     Active Substance: METAMIZOLE SODIUM
     Dosage: 90 DOSAGE FORMS DAILY; 30?30?30?0, DROPS

REACTIONS (5)
  - Apathy [Recovering/Resolving]
  - Fatigue [Recovering/Resolving]
  - Asthenia [Recovering/Resolving]
  - Renal impairment [Recovering/Resolving]
  - Anaemia [Recovering/Resolving]
